FAERS Safety Report 8831796 (Version 2)
Quarter: 2012Q4

REPORT INFORMATION
  Report Type: 
  Country: JP (occurrence: JP)
  Receive Date: 20121009
  Receipt Date: 20121106
  Transmission Date: 20130627
  Serious: Yes (Hospitalization)
  Sender: FDA-Public Use
  Company Number: JP-PFIZER INC-2012244614

PATIENT
  Age: 50 Year
  Sex: Female

DRUGS (3)
  1. AZULFIDINE EN [Suspect]
     Indication: RHEUMATOID ARTHRITIS
     Dosage: 500 mg, daily
     Route: 048
     Dates: start: 20120728, end: 20120929
  2. DAISPAS [Concomitant]
     Dosage: 75 mg, daily
     Route: 048
     Dates: start: 20120728, end: 20120929
  3. KOBALNON [Concomitant]
     Dosage: 100 mg, daoly
     Route: 048
     Dates: start: 20120728, end: 20120929

REACTIONS (2)
  - Hepatic function abnormal [Recovering/Resolving]
  - Urticaria [Not Recovered/Not Resolved]
